FAERS Safety Report 19097971 (Version 1)
Quarter: 2021Q2

REPORT INFORMATION
  Report Type: Other
  Country: CN (occurrence: CN)
  Receive Date: 20210406
  Receipt Date: 20210406
  Transmission Date: 20210717
  Serious: Yes (Hospitalization, Other)
  Sender: FDA-Public Use
  Company Number: CN-ROCHE-1987653

PATIENT
  Age: 62 Year
  Sex: Female
  Weight: 52 kg

DRUGS (1)
  1. AVASTIN [Suspect]
     Active Substance: BEVACIZUMAB
     Indication: NON-SMALL CELL LUNG CANCER
     Route: 041
     Dates: start: 20170115, end: 20201030

REACTIONS (5)
  - Interstitial lung disease [Unknown]
  - Nasopharyngitis [Unknown]
  - Dental caries [Unknown]
  - Toothache [Unknown]
  - Pyrexia [Unknown]

NARRATIVE: CASE EVENT DATE: 202102
